FAERS Safety Report 5901166-4 (Version None)
Quarter: 2008Q3

REPORT INFORMATION
  Report Type: 
  Country: None (occurrence: None)
  Receive Date: 20080929
  Receipt Date: 20080919
  Transmission Date: 20090109
  Serious: Yes (Hospitalization)
  Sender: FDA-Public Use
  Company Number: GB-ROCHE-587273

PATIENT
  Sex: Female
  Weight: 124.5 kg

DRUGS (2)
  1. ORLISTAT [Suspect]
     Indication: OBESITY
     Route: 048
     Dates: start: 20080508, end: 20080815
  2. MORPHINE [Concomitant]
     Indication: PAIN
     Dosage: LONG TERM

REACTIONS (1)
  - FOOD POISONING [None]
